FAERS Safety Report 23570697 (Version 7)
Quarter: 2024Q4

REPORT INFORMATION
  Report Type: Spontaneous
  Country: US (occurrence: US)
  Receive Date: 20240227
  Receipt Date: 20241223
  Transmission Date: 20250115
  Serious: No
  Sender: BIOGEN
  Company Number: US-BIOGEN-2023BI01239555

PATIENT
  Age: 38 Year
  Sex: Female

DRUGS (10)
  1. VUMERITY [Suspect]
     Active Substance: DIROXIMEL FUMARATE
     Indication: Multiple sclerosis
     Dosage: TAKE 2 CAPSULES BY MOUTH TWICE A DAY?ALSO REPORTED START DATE AS 14-DEC-2023
     Route: 050
     Dates: start: 20231114
  2. TOPIRAMATE [Concomitant]
     Active Substance: TOPIRAMATE
     Route: 050
  3. MAGNESIUM [Concomitant]
     Active Substance: MAGNESIUM
     Dosage: MAGNESIUM OX
     Route: 050
  4. D3 MAXIMUM STRENGTH [Concomitant]
     Route: 050
  5. VITAMIN K1 [Concomitant]
     Active Substance: PHYTONADIONE
     Dosage: 10MG/ ML VIAL (25/PK)
     Route: 050
  6. BUPROPION HYDROCHLORIDE XL [Concomitant]
     Active Substance: BUPROPION HYDROCHLORIDE
     Route: 050
  7. GABAPENTIN [Concomitant]
     Active Substance: GABAPENTIN
     Route: 050
  8. AMITRIPTYLINE HYDROCHLORIDE [Concomitant]
     Active Substance: AMITRIPTYLINE HYDROCHLORIDE
     Route: 050
  9. RIZATRIPTAN BENZOATE [Concomitant]
     Active Substance: RIZATRIPTAN BENZOATE
     Route: 050
  10. POTASSIUM [Concomitant]
     Active Substance: POTASSIUM
     Route: 050

REACTIONS (8)
  - Product dose omission issue [Unknown]
  - Neck pain [Not Recovered/Not Resolved]
  - Weight increased [Not Recovered/Not Resolved]
  - Asthenia [Not Recovered/Not Resolved]
  - Head discomfort [Not Recovered/Not Resolved]
  - Hot flush [Recovered/Resolved]
  - Abdominal pain upper [Recovered/Resolved]
  - Pruritus [Recovered/Resolved]

NARRATIVE: CASE EVENT DATE: 20231205
